FAERS Safety Report 6041594-2 (Version None)
Quarter: 2009Q1

REPORT INFORMATION
  Report Type: 
  Country: None (occurrence: None)
  Receive Date: 20090116
  Receipt Date: 20081024
  Transmission Date: 20090719
  Serious: No
  Sender: FDA-Public Use
  Company Number: US-BRISTOL-MYERS SQUIBB COMPANY-14382782

PATIENT
  Age: 58 Year
  Sex: Female
  Weight: 94 kg

DRUGS (14)
  1. ABILIFY [Suspect]
     Indication: SCHIZOPHRENIFORM DISORDER
  2. TRAZODONE HCL [Concomitant]
  3. NASONEX [Concomitant]
  4. MUCINEX [Concomitant]
  5. GLUCOSAMINE SULFATE [Concomitant]
  6. METAMUCIL [Concomitant]
  7. ASPIRIN [Concomitant]
  8. DETROL [Concomitant]
  9. NICOTROL [Concomitant]
  10. ADVAIR DISKUS 100/50 [Concomitant]
  11. MISOPROSTOL [Concomitant]
  12. VICODIN [Concomitant]
  13. NABUMETONE [Concomitant]
  14. LORATADINE [Concomitant]

REACTIONS (1)
  - BALANCE DISORDER [None]
